FAERS Safety Report 22036163 (Version 1)
Quarter: 2023Q1

REPORT INFORMATION
  Report Type: Spontaneous
  Country: US (occurrence: US)
  Receive Date: 20230225
  Receipt Date: 20230225
  Transmission Date: 20230418
  Serious: No
  Sender: FDA-Public Use
  Company Number: US-002147023-NVSC2023US037325

PATIENT
  Sex: Male

DRUGS (3)
  1. HYDROCORTISONE ACETATE [Suspect]
     Active Substance: HYDROCORTISONE ACETATE
     Indication: Product used for unknown indication
     Dosage: 1/2 %, BID
     Route: 065
  2. HYDROCORTISONE ACETATE [Suspect]
     Active Substance: HYDROCORTISONE ACETATE
     Dosage: UNK
     Route: 065
  3. KENALOG [Concomitant]
     Active Substance: TRIAMCINOLONE ACETONIDE
     Indication: Product used for unknown indication
     Dosage: 40 MG
     Route: 030

REACTIONS (9)
  - Eczema [Unknown]
  - Burning sensation [Unknown]
  - Erythema [Unknown]
  - Condition aggravated [Unknown]
  - Swelling [Unknown]
  - Pruritus [Unknown]
  - Product availability issue [Unknown]
  - Dermatitis [Unknown]
  - Drug ineffective [Unknown]
